FAERS Safety Report 21357762 (Version 2)
Quarter: 2022Q4

REPORT INFORMATION
  Report Type: Report from Study
  Country: AT (occurrence: AT)
  Receive Date: 20220921
  Receipt Date: 20221230
  Transmission Date: 20230112
  Serious: Yes (Hospitalization)
  Sender: FDA-Public Use
  Company Number: AT-ROCHE-3095919

PATIENT
  Age: 45 Year
  Sex: Female
  Weight: 46 kg

DRUGS (27)
  1. CAPECITABINE [Suspect]
     Active Substance: CAPECITABINE
     Indication: HER2 positive breast cancer
     Dosage: 4000 MILLIGRAM DAILY; FREQUENCY: B.I.D. - TWICE DAILY MOST RECENT DOSE PRIOR TO THE EVENT: 09/NOV/20
     Route: 065
     Dates: start: 20211014, end: 20211109
  2. PACLITAXEL [Suspect]
     Active Substance: PACLITAXEL
     Indication: HER2 positive breast cancer
     Dosage: DATE OF MOST RECENT DOSE: 20/SEP/2021
     Route: 065
     Dates: start: 20210811, end: 20210927
  3. PACLITAXEL [Suspect]
     Active Substance: PACLITAXEL
     Dosage: UNIT DOSE : 140 MG, FREQUENCY TIME :1 WEEK
     Dates: start: 20210927
  4. PACLITAXEL [Suspect]
     Active Substance: PACLITAXEL
     Dosage: UNIT DOSE : 640 MG, FREQUENCY TIME : 2 WEEKS , DURATION : 43 DAYS
     Dates: start: 20220118, end: 20220301
  5. PACLITAXEL [Suspect]
     Active Substance: PACLITAXEL
     Dosage: UNIT DOSE : 140 MG, FREQUENCY TIME : 1 WEEKS
     Dates: start: 20210920
  6. ADO-TRASTUZUMAB EMTANSINE [Suspect]
     Active Substance: ADO-TRASTUZUMAB EMTANSINE
     Indication: HER2 positive breast cancer
     Dosage: FREQUENCY: Q3W - EVERY 3 WEEKS MOST RECENT DOSE PRIOR TO THE EVENT:15/JUN/2020
     Route: 065
     Dates: start: 20180523, end: 20200615
  7. ATEZOLIZUMAB [Suspect]
     Active Substance: ATEZOLIZUMAB
     Indication: HER2 positive breast cancer
     Dosage: UNIT DOSE :  640 MG
     Route: 065
     Dates: start: 20220118, end: 20220301
  8. ATEZOLIZUMAB [Suspect]
     Active Substance: ATEZOLIZUMAB
     Dosage: UNIT DOSE: 840 MG , FREQUENCY TIME : 2 WEEKS, DURATION : 43 DAYS
     Dates: start: 20220118, end: 20220301
  9. LASIX [Concomitant]
     Active Substance: FUROSEMIDE
     Indication: Product used for unknown indication
     Dosage: ONGOING = CHECKED
     Dates: start: 20210913
  10. METOCLOPRAMIDE HYDROCHLORIDE [Concomitant]
     Active Substance: METOCLOPRAMIDE HYDROCHLORIDE
     Indication: Product used for unknown indication
     Dosage: ONGOING = CHECKED
     Dates: start: 20210811
  11. MORPHINE [Concomitant]
     Active Substance: MORPHINE
     Indication: Subclavian vein thrombosis
     Dosage: ONGOING = CHECKED
     Dates: start: 20210912
  12. MORPHINE [Concomitant]
     Active Substance: MORPHINE
     Indication: Axillary vein thrombosis
  13. XARELTO [Concomitant]
     Active Substance: RIVAROXABAN
     Indication: Axillary vein thrombosis
     Dosage: ONGOING = CHECKED
     Dates: start: 20210818
  14. XARELTO [Concomitant]
     Active Substance: RIVAROXABAN
     Indication: Subclavian vein thrombosis
  15. NEBIVOLOL [Concomitant]
     Active Substance: NEBIVOLOL
     Indication: Ejection fraction decreased
     Dosage: ONGOING = CHECKED
     Dates: start: 20211005
  16. DIPYRONE [Concomitant]
     Active Substance: DIPYRONE
     Indication: Product used for unknown indication
     Dosage: ONGOING = CHECKED
     Dates: start: 20210907
  17. POLYETHYLENE GLYCOL 3350\POTASSIUM CHLORIDE\SODIUM BICARBONATE\SODIUM [Concomitant]
     Active Substance: POLYETHYLENE GLYCOL 3350\POTASSIUM CHLORIDE\SODIUM BICARBONATE\SODIUM CHLORIDE
     Indication: Constipation
     Dosage: ONGOING = CHECKED
     Dates: start: 20210614
  18. ZOFRAN [Concomitant]
     Active Substance: ONDANSETRON HYDROCHLORIDE
     Indication: Product used for unknown indication
     Dosage: ONGOING = CHECKED
     Route: 065
     Dates: start: 20210811
  19. ZOFRAN [Concomitant]
     Active Substance: ONDANSETRON HYDROCHLORIDE
     Dosage: ONGOING = CHECKED
     Dates: start: 20220118
  20. LISINOPRIL [Concomitant]
     Active Substance: LISINOPRIL
     Indication: Ejection fraction decreased
     Dosage: ONGOING = CHECKED
     Route: 065
     Dates: start: 20200815
  21. LISINOPRIL [Concomitant]
     Active Substance: LISINOPRIL
     Dosage: ONGOING = CHECKED
     Dates: start: 20200525
  22. DIPHENHYDRAMINE [Concomitant]
     Active Substance: DIPHENHYDRAMINE
     Indication: Product used for unknown indication
     Dates: start: 20220315
  23. FENTANYL [Concomitant]
     Active Substance: FENTANYL
     Indication: Pain in extremity
     Dosage: ONGOING = CHECKED
     Dates: start: 20220426
  24. ACETAMINOPHEN [Concomitant]
     Active Substance: ACETAMINOPHEN
     Indication: Product used for unknown indication
     Dates: start: 20220315
  25. PREGABALIN [Concomitant]
     Active Substance: PREGABALIN
     Indication: Pain in extremity
     Dates: start: 20220508
  26. DEXAMETHASONE [Concomitant]
     Active Substance: DEXAMETHASONE
     Indication: Product used for unknown indication
     Dosage: ONGOING = CHECKED
     Route: 065
     Dates: start: 20220315
  27. LEVOTHYROXINE SODIUM [Concomitant]
     Active Substance: LEVOTHYROXINE SODIUM
     Indication: Hypothyroidism
     Dates: start: 20211128

REACTIONS (4)
  - Catheter site inflammation [Recovered/Resolved]
  - Catheter site injury [Recovered/Resolved]
  - Catheter site infection [Recovered/Resolved]
  - Rash [Unknown]

NARRATIVE: CASE EVENT DATE: 20220217
